FAERS Safety Report 4702939-6 (Version None)
Quarter: 2005Q2

REPORT INFORMATION
  Report Type: 
  Country: None (occurrence: None)
  Receive Date: 20050629
  Receipt Date: 20050623
  Transmission Date: 20051028
  Serious: Yes (Other)
  Sender: FDA-Public Use
  Company Number: 200511863JP

PATIENT
  Age: 61 Year
  Sex: Male

DRUGS (1)
  1. LASIX [Suspect]
     Route: 042
     Dates: start: 20050602

REACTIONS (1)
  - STEVENS-JOHNSON SYNDROME [None]
